FAERS Safety Report 11779543 (Version 2)
Quarter: 2015Q4

REPORT INFORMATION
  Report Type: Spontaneous
  Country: HR (occurrence: HR)
  Receive Date: 20151125
  Receipt Date: 20151215
  Transmission Date: 20160304
  Serious: Yes (Life-Threatening)
  Sender: FDA-Public Use
  Company Number: HR-TEVA-610600ISR

PATIENT
  Age: 59 Year
  Sex: Female
  Weight: 60 kg

DRUGS (14)
  1. FUROSEMID [Concomitant]
     Active Substance: FUROSEMIDE
     Indication: PLEURAL EFFUSION
     Route: 048
  2. FOLACIN [Concomitant]
     Active Substance: FOLIC ACID
     Route: 048
  3. FENISTIL [Concomitant]
     Active Substance: DIMETHINDENE
     Route: 048
  4. CANESTEN [Concomitant]
     Active Substance: CLOTRIMAZOLE
  5. METHOTREXATE PLIVA [Suspect]
     Active Substance: METHOTREXATE
     Indication: RHEUMATOID ARTHRITIS
     Route: 048
     Dates: start: 2010, end: 20150803
  6. MOKSACIN [Concomitant]
     Indication: PNEUMONIA
     Dosage: 400 MILLIGRAM DAILY;
     Route: 048
  7. KCI [Concomitant]
  8. NEUROBION [Concomitant]
     Active Substance: CYANOCOBALAMIN\PYRIDOXINE\THIAMINE
     Dosage: FORM OF ADMIN.:AMPULES, INTRAMUSCULAR
     Route: 030
  9. PHOLCODINE [Concomitant]
     Active Substance: PHOLCODINE
  10. SYNOPEN [Concomitant]
     Indication: HYPERSENSITIVITY
     Dosage: FORM OF ADMIN.: AMPULES
     Route: 030
  11. CEDAX [Concomitant]
     Active Substance: CEFTIBUTEN DIHYDRATE
     Indication: URINARY TRACT INFECTION
     Dosage: 400 MILLIGRAM DAILY;
     Route: 048
  12. DEXAMETHASON [Concomitant]
     Active Substance: DEXAMETHASONE
     Route: 030
  13. MEDROL [Concomitant]
     Active Substance: METHYLPREDNISOLONE
     Indication: HYPERSENSITIVITY
     Route: 048
  14. BRUFEN SR [Concomitant]
     Dosage: 800 MILLIGRAM DAILY;
     Route: 048

REACTIONS (6)
  - Choking [Recovering/Resolving]
  - Pleural effusion [Recovering/Resolving]
  - Pallor [Recovering/Resolving]
  - Inflammation [Recovering/Resolving]
  - Anaemia megaloblastic [Unknown]
  - Pulmonary oedema [Unknown]

NARRATIVE: CASE EVENT DATE: 2015
